FAERS Safety Report 5508232-6 (Version None)
Quarter: 2007Q4

REPORT INFORMATION
  Report Type: 
  Country: None (occurrence: None)
  Receive Date: 20071106
  Receipt Date: 20071016
  Transmission Date: 20080405
  Serious: Yes (Life-Threatening, Hospitalization)
  Sender: FDA-Public Use
  Company Number: US-PFIZER INC-2007091716

PATIENT
  Age: 47 Year
  Sex: Female

DRUGS (29)
  1. ALPRAZOLAM [Suspect]
     Route: 048
     Dates: start: 20070718, end: 20070802
  2. ISOSORBIDE MONONITRATE [Suspect]
     Indication: ANGINA PECTORIS
     Route: 048
     Dates: start: 20070718, end: 20070723
  3. METOPROLOL SUCCINATE [Suspect]
     Indication: ANGINA PECTORIS
     Route: 048
     Dates: start: 20070718, end: 20070723
  4. METOPROLOL SUCCINATE [Suspect]
     Indication: HYPERTENSION
  5. METOPROLOL SUCCINATE [Suspect]
     Indication: CARDIAC FAILURE CONGESTIVE
  6. NITROGLYCERIN [Suspect]
     Indication: ANGINA PECTORIS
     Route: 042
     Dates: start: 20070719, end: 20070719
  7. BLINDED ALPRAZOLAM [Suspect]
  8. HYDROMORPHONE HCL [Concomitant]
  9. MIDAZOLAM HYDROCHLORIDE [Concomitant]
     Dates: start: 20070718, end: 20070718
  10. ONDANSETRON [Concomitant]
     Dates: start: 20070718, end: 20070802
  11. EPTIFIBATIDE [Concomitant]
     Dates: start: 20070718, end: 20070718
  12. PHENYLEPHRINE HYDROCHLORIDE [Concomitant]
     Dates: start: 20070718, end: 20070718
  13. ASPIRIN [Concomitant]
     Dates: start: 20070718
  14. HEPARIN [Concomitant]
     Dates: start: 20070718, end: 20070718
  15. LEVOSALBUTAMOL [Concomitant]
     Dates: start: 20070722, end: 20070723
  16. MAGNESIUM SULFATE [Concomitant]
     Dates: start: 20070718, end: 20070718
  17. PROMETHAZINE HCL [Concomitant]
     Dates: start: 20070718, end: 20070718
  18. POTASSIUM CHLORIDE [Concomitant]
     Dates: start: 20070718, end: 20070723
  19. NICOTINE [Concomitant]
     Route: 062
     Dates: start: 20070721, end: 20070802
  20. MEPERIDINE HCL [Concomitant]
     Dates: start: 20070718, end: 20070718
  21. KETOROLAC [Concomitant]
     Dates: start: 20070720, end: 20070727
  22. PANTOPRAZOLE SODIUM [Concomitant]
     Dates: start: 20070718, end: 20070730
  23. SIMVASTATIN [Concomitant]
     Dates: start: 20070719
  24. CLOPIDOGREL [Concomitant]
     Dates: start: 20070719, end: 20070721
  25. FUROSEMIDE [Concomitant]
  26. DILTIAZEM [Concomitant]
     Dates: start: 20070720, end: 20070802
  27. PARACETAMOL [Concomitant]
     Dates: start: 20070718, end: 20070802
  28. LIDOCAINE [Concomitant]
     Dates: start: 20070718, end: 20070718
  29. NITROGLYCERIN [Concomitant]
     Dates: start: 20070718, end: 20070802

REACTIONS (4)
  - ATRIOVENTRICULAR BLOCK [None]
  - CARDIAC ARREST [None]
  - HYPOTENSION [None]
  - NAUSEA [None]
